FAERS Safety Report 9189868 (Version 2)
Quarter: 2013Q2

REPORT INFORMATION
  Report Type: Spontaneous
  Country: DE (occurrence: DE)
  Receive Date: 20130326
  Receipt Date: 20130624
  Transmission Date: 20140414
  Serious: Yes (Other)
  Sender: FDA-Public Use
  Company Number: DE-AMGEN-DEUSP2013019567

PATIENT
  Sex: 0

DRUGS (2)
  1. XGEVA [Suspect]
     Indication: METASTASES TO BONE
     Dosage: UNK
  2. CHEMOTHERAPEUTICS [Concomitant]

REACTIONS (1)
  - Osteonecrosis of jaw [Unknown]
